FAERS Safety Report 24346667 (Version 2)
Quarter: 2025Q3

REPORT INFORMATION
  Report Type: Spontaneous
  Country: CN (occurrence: CN)
  Receive Date: 20240921
  Receipt Date: 20250805
  Transmission Date: 20251020
  Serious: Yes (Other)
  Sender: ABBVIE
  Company Number: CN-PFIZER INC-PV202400119189

PATIENT
  Age: 20 Year
  Sex: Female

DRUGS (18)
  1. AVIBACTAM SODIUM\CEFTAZIDIME [Suspect]
     Active Substance: AVIBACTAM SODIUM\CEFTAZIDIME
     Indication: Anti-infective therapy
     Route: 065
  2. ERAVACYCLINE [Suspect]
     Active Substance: ERAVACYCLINE
     Indication: Anti-infective therapy
     Route: 065
  3. ACYCLOVIR [Suspect]
     Active Substance: ACYCLOVIR
     Indication: Anti-infective therapy
     Route: 065
  4. VANCOCIN [Suspect]
     Active Substance: VANCOMYCIN HYDROCHLORIDE
     Indication: Anti-infective therapy
     Route: 065
  5. NOXAFIL [Suspect]
     Active Substance: POSACONAZOLE
     Indication: Anti-infective therapy
     Route: 065
  6. TIGECYCLINE [Suspect]
     Active Substance: TIGECYCLINE
     Indication: Anti-infective therapy
     Route: 065
  7. TIGECYCLINE [Suspect]
     Active Substance: TIGECYCLINE
     Indication: Anti-infective therapy
     Route: 065
  8. SOLU-MEDROL [Suspect]
     Active Substance: METHYLPREDNISOLONE SODIUM SUCCINATE
     Indication: Bone marrow transplant rejection
     Dosage: 40 MG Q12H
     Route: 065
  9. AMIKACIN [Suspect]
     Active Substance: AMIKACIN
     Indication: Anti-infective therapy
     Route: 065
  10. MYCOPHENOLATE MOFETIL [Suspect]
     Active Substance: MYCOPHENOLATE MOFETIL
     Indication: Bone marrow transplant rejection
     Route: 065
  11. MEROPENEM [Suspect]
     Active Substance: MEROPENEM
     Indication: Anti-infective therapy
     Route: 065
  12. CYCLOSPORINE [Suspect]
     Active Substance: CYCLOSPORINE
     Indication: Bone marrow transplant rejection
     Route: 065
  13. POLYMYXIN [Suspect]
     Active Substance: POLYMYXIN
     Indication: Anti-infective therapy
     Route: 065
  14. TARGOCID [Suspect]
     Active Substance: TEICOPLANIN
     Indication: Anti-infective therapy
     Route: 065
  15. LETERMOVIR [Suspect]
     Active Substance: LETERMOVIR
     Indication: Anti-infective therapy
     Route: 065
  16. CEFOPERAZONE SODIUM\SULBACTAM SODIUM [Suspect]
     Active Substance: CEFOPERAZONE SODIUM\SULBACTAM SODIUM
     Indication: Anti-infective therapy
     Route: 065
  17. CEFOPERAZONE SODIUM\SULBACTAM SODIUM [Suspect]
     Active Substance: CEFOPERAZONE SODIUM\SULBACTAM SODIUM
     Indication: Anti-infective therapy
     Route: 065
  18. SIMULECT [Suspect]
     Active Substance: BASILIXIMAB
     Indication: Bone marrow transplant rejection
     Route: 065

REACTIONS (7)
  - Thrombotic microangiopathy [Unknown]
  - Blood bilirubin increased [Unknown]
  - Gastrointestinal haemorrhage [Unknown]
  - Renal injury [Not Recovered/Not Resolved]
  - Condition aggravated [Not Recovered/Not Resolved]
  - Liver injury [Unknown]
  - Pancreatitis [Unknown]

NARRATIVE: CASE EVENT DATE: 20240101
